FAERS Safety Report 7671634-6 (Version None)
Quarter: 2011Q3

REPORT INFORMATION
  Report Type: 
  Country: None (occurrence: None)
  Receive Date: 20110809
  Receipt Date: 20110803
  Transmission Date: 20111222
  Serious: Yes (Hospitalization, Other)
  Sender: FDA-Public Use
  Company Number: JP-ACTELION-A-CH2010-41080

PATIENT
  Sex: Female
  Weight: 60 kg

DRUGS (12)
  1. CYCLOPHOSPHAMIDE [Concomitant]
     Dosage: UNK
     Dates: start: 20100101, end: 20100201
  2. TRACLEER [Suspect]
     Dosage: 62.5 MG, BID
     Route: 048
     Dates: start: 20100301, end: 20100409
  3. TRACLEER [Suspect]
     Dosage: 125 MG, BID
     Route: 048
     Dates: start: 20100410, end: 20100419
  4. FUROSEMIDE [Concomitant]
  5. OXYGEN [Concomitant]
  6. TRACLEER [Suspect]
     Indication: PULMONARY ARTERIAL HYPERTENSION
     Dosage: 62.5 MG, QD
     Route: 048
     Dates: start: 20100101, end: 20100301
  7. LANSOPRAZOLE [Concomitant]
  8. BERAPROST SODIUM [Concomitant]
  9. TRACLEER [Suspect]
     Dosage: 125 MG, QD
     Route: 048
     Dates: start: 20100420
  10. URSODIOL [Concomitant]
  11. AMPHOTERICIN B [Concomitant]
  12. SULFAMETHOXAZOLE AND TRIMETHOPRIM [Concomitant]

REACTIONS (11)
  - HEPATIC ENCEPHALOPATHY [None]
  - PANCYTOPENIA [None]
  - GAMMA-GLUTAMYLTRANSFERASE INCREASED [None]
  - WHITE BLOOD CELL COUNT DECREASED [None]
  - RED BLOOD CELL COUNT DECREASED [None]
  - ALANINE AMINOTRANSFERASE INCREASED [None]
  - HAEMOGLOBIN DECREASED [None]
  - PLATELET COUNT DECREASED [None]
  - ASPARTATE AMINOTRANSFERASE INCREASED [None]
  - LIVER FUNCTION TEST ABNORMAL [None]
  - HAEMATOCRIT DECREASED [None]
